FAERS Safety Report 7175821-5 (Version None)
Quarter: 2010Q4

REPORT INFORMATION
  Report Type: 
  Country: None (occurrence: None)
  Receive Date: 20101207
  Receipt Date: 20101122
  Transmission Date: 20110411
  Serious: Yes (Hospitalization)
  Sender: FDA-Public Use
  Company Number: CTI_01187_2010

PATIENT
  Sex: Female

DRUGS (2)
  1. SPECTRACEF [Suspect]
     Indication: BRONCHITIS
     Dosage: (400 MG QD ORAL)
     Route: 048
     Dates: start: 20100402, end: 20100415
  2. LEVOTHYROXINE SODIUM [Concomitant]

REACTIONS (4)
  - ASTHENIA [None]
  - BLOOD ALBUMIN DECREASED [None]
  - FATIGUE [None]
  - VOMITING [None]
